FAERS Safety Report 8701955 (Version 3)
Quarter: 2012Q4

REPORT INFORMATION
  Report Type: 
  Country: US (occurrence: US)
  Receive Date: 20120803
  Receipt Date: 20121203
  Transmission Date: 20130627
  Serious: Yes (Hospitalization, Other)
  Sender: FDA-Public Use
  Company Number: US-CELGENEUS-163-21880-12072803

PATIENT
  Age: 71 None
  Sex: Female
  Weight: 60.84 kg

DRUGS (10)
  1. REVLIMID [Suspect]
     Indication: MULTIPLE MYELOMA
     Dosage: 15 Milligram
     Route: 048
     Dates: start: 20101006, end: 20110111
  2. REVLIMID [Suspect]
     Dosage: 10 Milligram
     Route: 048
     Dates: start: 20120113, end: 2012
  3. REVLIMID [Suspect]
     Dosage: 5 Milligram
     Route: 048
     Dates: start: 201202, end: 2012
  4. REVLIMID [Suspect]
     Dosage: 5 Milligram
     Route: 048
     Dates: start: 201209
  5. REVLIMID [Suspect]
     Dosage: 5 Milligram
     Route: 048
     Dates: start: 201211
  6. AMLODIPINE [Concomitant]
     Indication: DRUG USE FOR UNKNOWN INDICATION
     Route: 065
  7. CALCITRIOL [Concomitant]
     Indication: DRUG USE FOR UNKNOWN INDICATION
     Route: 065
  8. CALCIUM MAGNESIUM ZINC [Concomitant]
     Indication: DRUG USE FOR UNKNOWN INDICATION
     Route: 065
  9. ASPIRIN [Concomitant]
     Indication: DRUG USE FOR UNKNOWN INDICATION
     Route: 065
  10. VITAMIN B COMPLEX WITH C [Concomitant]
     Indication: DRUG USE FOR UNKNOWN INDICATION
     Route: 065

REACTIONS (5)
  - Intraductal proliferative breast lesion [Unknown]
  - Dehydration [Unknown]
  - Renal impairment [Unknown]
  - Constipation [Unknown]
  - Bronchial secretion retention [Unknown]
